FAERS Safety Report 11877118 (Version 2)
Quarter: 2016Q1

REPORT INFORMATION
  Report Type: Spontaneous
  Country: FR (occurrence: JP)
  Receive Date: 20151229
  Receipt Date: 20160224
  Transmission Date: 20160526
  Serious: Yes (Other)
  Sender: FDA-Public Use
  Company Number: JP-FRI-1000081887

PATIENT
  Age: 30 Year
  Sex: Male
  Weight: 65 kg

DRUGS (5)
  1. SELENICA-R [Interacting]
     Active Substance: VALPROATE SODIUM
     Indication: EPILEPSY
     Dosage: 800 MG
     Route: 048
     Dates: start: 201404, end: 201501
  2. ACAMPROSATE [Suspect]
     Active Substance: ACAMPROSATE
     Indication: ALCOHOLISM
     Dosage: 1980 MG
     Route: 048
     Dates: start: 20141205, end: 20150114
  3. ACAMPROSATE [Interacting]
     Active Substance: ACAMPROSATE
     Dosage: DOSE REDUCED BY HALF TO 990 MG/DAY
     Route: 048
     Dates: start: 20150115, end: 20150220
  4. MYSLEE [Concomitant]
     Active Substance: ZOLPIDEM TARTRATE
     Indication: SLEEP DISORDER
     Dates: start: 201412
  5. SELENICA-R [Interacting]
     Active Substance: VALPROATE SODIUM
     Dosage: DOSE INCREASED TO 1000 MG/DAY
     Route: 048
     Dates: start: 20150122

REACTIONS (2)
  - Drug interaction [Recovered/Resolved]
  - Epilepsy [Recovered/Resolved]

NARRATIVE: CASE EVENT DATE: 20150109
